FAERS Safety Report 12967928 (Version 2)
Quarter: 2016Q4

REPORT INFORMATION
  Report Type: Spontaneous
  Country: US (occurrence: US)
  Receive Date: 20161123
  Receipt Date: 20161227
  Transmission Date: 20170207
  Serious: No
  Sender: FDA-Public Use
  Company Number: US-PFIZER INC-2016542396

PATIENT
  Age: 8 Decade
  Sex: Female
  Weight: 82 kg

DRUGS (1)
  1. CHANTIX [Suspect]
     Active Substance: VARENICLINE TARTRATE
     Indication: SMOKING CESSATION THERAPY
     Dosage: UNK

REACTIONS (4)
  - Agitation [Recovered/Resolved]
  - Nightmare [Recovered/Resolved]
  - Screaming [Recovered/Resolved]
  - Feeling abnormal [Unknown]
